FAERS Safety Report 5691067-1 (Version None)
Quarter: 2008Q2

REPORT INFORMATION
  Report Type: 
  Country: None (occurrence: None)
  Receive Date: 20080401
  Receipt Date: 20080321
  Transmission Date: 20081010
  Serious: Yes (Hospitalization)
  Sender: FDA-Public Use
  Company Number: PFIZER INC-2008026550

PATIENT
  Age: 49 Year
  Sex: Male
  Weight: 71 kg

DRUGS (1)
  1. SU-011,248 [Suspect]
     Indication: PLEURAL MESOTHELIOMA
     Route: 048

REACTIONS (1)
  - SUBCUTANEOUS EMPHYSEMA [None]
